FAERS Safety Report 24228381 (Version 1)
Quarter: 2024Q3

REPORT INFORMATION
  Report Type: Spontaneous
  Country: US (occurrence: None)
  Receive Date: 20240819
  Receipt Date: 20240819
  Transmission Date: 20241017
  Serious: Yes (Hospitalization)
  Sender: Public
  Company Number: None

PATIENT
  Age: 76 Year
  Sex: Male
  Weight: 83 kg

DRUGS (1)
  1. EXPAREL [Suspect]
     Active Substance: BUPIVACAINE
     Indication: Analgesic therapy
     Dosage: 7.5 ML PERINEURAL
     Route: 053
     Dates: start: 20240805, end: 20240805

REACTIONS (2)
  - Phrenic nerve paralysis [None]
  - Oxygen consumption increased [None]

NARRATIVE: CASE EVENT DATE: 20240805
